FAERS Safety Report 6330487-9 (Version None)
Quarter: 2009Q3

REPORT INFORMATION
  Report Type: 
  Country: None (occurrence: None)
  Receive Date: 20090827
  Receipt Date: 20090521
  Transmission Date: 20100115
  Serious: Yes (Other)
  Sender: FDA-Public Use
  Company Number: A0786526A

PATIENT
  Age: 34 Year
  Sex: Male
  Weight: 107 kg

DRUGS (11)
  1. ACYCLOVIR [Suspect]
     Indication: MULTIPLE SCLEROSIS
     Route: 065
  2. CIPROFLOXACIN [Suspect]
     Dosage: 500MG TWICE PER DAY
  3. REBIF [Suspect]
     Indication: MULTIPLE SCLEROSIS
     Dosage: 44MCG THREE TIMES PER WEEK
     Dates: start: 20080509, end: 20080912
  4. ATENOLOL [Concomitant]
     Indication: HYPERTENSION
  5. SIMVASTATIN [Concomitant]
     Indication: BLOOD CHOLESTEROL INCREASED
  6. FOLIC ACID [Concomitant]
  7. FLUOXETINE [Concomitant]
     Indication: DEPRESSION
  8. FAMOTIDINE [Concomitant]
     Indication: MULTIPLE SCLEROSIS
  9. VITAMIN B-12 [Concomitant]
  10. VITAMIN D [Concomitant]
  11. ASCORBIC ACID [Concomitant]

REACTIONS (2)
  - CONVULSION [None]
  - LOSS OF CONSCIOUSNESS [None]
